FAERS Safety Report 7249053-6 (Version None)
Quarter: 2011Q1

REPORT INFORMATION
  Report Type: 
  Country: None (occurrence: None)
  Receive Date: 20110128
  Receipt Date: 20100618
  Transmission Date: 20110831
  Serious: Yes (Other)
  Sender: FDA-Public Use
  Company Number: US-BAYER-201019667NA

PATIENT
  Sex: Female
  Weight: 77.098 kg

DRUGS (18)
  1. YAZ [Suspect]
     Dosage: UNK
     Route: 048
  2. DIAZIDE [Concomitant]
     Dosage: UNK
     Dates: start: 20090101
  3. WELLBUTRIN [Concomitant]
     Indication: DEPRESSION
     Dosage: UNK
  4. FLUCONAZOLE [Concomitant]
     Dosage: UNK
     Dates: start: 20081210
  5. ANTIBIOTICS [Concomitant]
     Dosage: UNK UNK, PRN
  6. ADVIL [Concomitant]
     Dosage: UNK UNK, PRN
  7. NASONEX [Concomitant]
     Indication: MULTIPLE ALLERGIES
  8. NORVASC [Concomitant]
     Dosage: UNK
     Dates: start: 20090101
  9. PAXIL [Concomitant]
     Indication: DEPRESSION
  10. METHYLPREDNISOLONE [Concomitant]
     Dosage: UNK
     Dates: start: 20081224
  11. MOTRIN [Concomitant]
     Dosage: UNK UNK, PRN
  12. CLARITHROMYCIN [Concomitant]
     Dosage: UNK
     Dates: start: 20081205
  13. ALBUTEROL [Concomitant]
     Dosage: UNK
     Dates: start: 20080101
  14. DIURETICS [Concomitant]
     Dosage: UNK
  15. JASMINE [Suspect]
     Dosage: UNK
     Dates: start: 20081101, end: 20090124
  16. SYNTHROID [Concomitant]
     Indication: BASEDOW'S DISEASE
     Dosage: UNK
     Dates: start: 19850101
  17. IPRATROPIUM BROMIDE [Concomitant]
     Indication: MULTIPLE ALLERGIES
  18. PREVACID [Concomitant]
     Indication: GASTROOESOPHAGEAL REFLUX DISEASE

REACTIONS (2)
  - ATRIAL FIBRILLATION [None]
  - HYPERTENSION [None]
